FAERS Safety Report 8263276-9 (Version None)
Quarter: 2012Q2

REPORT INFORMATION
  Report Type: 
  Country: None (occurrence: None)
  Receive Date: 20120405
  Receipt Date: 20120402
  Transmission Date: 20120825
  Serious: Yes (Other)
  Sender: FDA-Public Use
  Company Number: US-PFIZER INC-2012055230

PATIENT
  Sex: Female

DRUGS (16)
  1. LOPID [Suspect]
     Indication: TYPE V HYPERLIPIDAEMIA
  2. METFORMIN HCL [Suspect]
     Indication: TYPE V HYPERLIPIDAEMIA
     Dosage: 1000 MG, 1X/DAY
     Route: 048
     Dates: start: 20120216
  3. LISINOPRIL [Concomitant]
     Dosage: 5 MG, DAILY
     Route: 048
     Dates: start: 20120215, end: 20120216
  4. METFORMIN HCL [Suspect]
     Indication: TYPE 2 DIABETES MELLITUS
  5. LANTUS [Concomitant]
     Dosage: 41 IU, DAILY
     Route: 058
     Dates: start: 20110602, end: 20110830
  6. LOVASTATIN [Concomitant]
     Dosage: 10 MG, DAILY
     Route: 048
     Dates: start: 20110107, end: 20110705
  7. LOPID [Suspect]
     Indication: DIABETES MELLITUS INADEQUATE CONTROL
     Dosage: 600 MG, 2X/DAY
     Route: 048
     Dates: start: 20120215, end: 20120216
  8. GLIMEPIRIDE [Concomitant]
     Dosage: 4 MG, 2X/DAY
     Route: 048
     Dates: start: 20110527, end: 20120215
  9. LANTUS [Concomitant]
     Dosage: 30 IU, DAILY
     Route: 058
     Dates: start: 20100528, end: 20110601
  10. LISINOPRIL [Concomitant]
     Dosage: 5 MG, DAILY
     Route: 048
     Dates: start: 20110527, end: 20111122
  11. GLIMEPIRIDE [Concomitant]
     Dosage: 4 MG, 2X/DAY
     Route: 048
     Dates: start: 20100528
  12. LOPID [Suspect]
     Indication: TYPE 2 DIABETES MELLITUS
  13. LANTUS [Concomitant]
     Dosage: 41 IU, DAILY
     Route: 058
     Dates: start: 20120216
  14. CYCLOBENZAPRINE [Concomitant]
     Dosage: 10 MG, 3X/DAY
     Route: 048
     Dates: start: 20110527, end: 20110623
  15. LANTUS [Concomitant]
     Dosage: UNK
     Route: 058
     Dates: end: 20120215
  16. METFORMIN HCL [Suspect]
     Indication: DIABETES MELLITUS INADEQUATE CONTROL
     Dosage: 2500 MG, DAILY
     Route: 048
     Dates: start: 20110527, end: 20120215

REACTIONS (2)
  - DIARRHOEA [None]
  - DIABETES MELLITUS INADEQUATE CONTROL [None]
